FAERS Safety Report 9331389 (Version 2)
Quarter: 2013Q3

REPORT INFORMATION
  Report Type: Spontaneous
  Country: AU (occurrence: AU)
  Receive Date: 20130605
  Receipt Date: 20130703
  Transmission Date: 20140515
  Serious: No
  Sender: FDA-Public Use
  Company Number: AU-B.I. PHARMACEUTICALS,INC./RIDGEFIELD-2013-BI-14258YA

PATIENT
  Age: 7 Decade
  Sex: Male
  Weight: 90 kg

DRUGS (3)
  1. TAMSULOSINA [Suspect]
     Indication: BENIGN PROSTATIC HYPERPLASIA
     Dosage: 400 MCG
     Route: 048
     Dates: start: 20130325
  2. TAMSULOSINA [Suspect]
     Dosage: DOSE: 400 UG,
     Route: 048
     Dates: start: 20130416
  3. DOXYCYCLINE [Concomitant]
     Dosage: 100 MG
     Route: 048
     Dates: start: 20130323, end: 20130330

REACTIONS (2)
  - Nocturia [Recovered/Resolved]
  - Drug ineffective [Recovered/Resolved]
